APPROVED DRUG PRODUCT: PREVANTICS MAXI SWABSTICK
Active Ingredient: CHLORHEXIDINE GLUCONATE; ISOPROPYL ALCOHOL
Strength: 3.15%;70% (5.1ML)
Dosage Form/Route: SWAB;TOPICAL
Application: N021524 | Product #003
Applicant: PROFESSIONAL DISPOSABLES INC
Approved: Jun 3, 2005 | RLD: Yes | RS: Yes | Type: OTC